FAERS Safety Report 14369024 (Version 1)
Quarter: 2018Q1

REPORT INFORMATION
  Report Type: Spontaneous
  Country: US (occurrence: US)
  Receive Date: 20180109
  Receipt Date: 20180109
  Transmission Date: 20180509
  Serious: No
  Sender: FDA-Public Use
  Company Number: US-DRREDDYS-USA/USA/16/0085852

PATIENT
  Sex: Female
  Weight: 65.7 kg

DRUGS (1)
  1. NICOTINE. [Suspect]
     Active Substance: NICOTINE
     Indication: SMOKING CESSATION THERAPY
     Dosage: 3 WEEKS AGO
     Route: 062

REACTIONS (3)
  - Application site erythema [Unknown]
  - Application site pruritus [Unknown]
  - Sleep disorder [Unknown]
